FAERS Safety Report 9161938 (Version 1)
Quarter: 2013Q1

REPORT INFORMATION
  Report Type: Spontaneous
  Country: US (occurrence: US)
  Receive Date: 20130314
  Receipt Date: 20130314
  Transmission Date: 20140127
  Serious: No
  Sender: FDA-Public Use
  Company Number: US-JNJFOC-20130305079

PATIENT
  Age: 41 Year
  Sex: Female

DRUGS (2)
  1. INVEGA [Suspect]
     Indication: SCHIZOAFFECTIVE DISORDER
     Route: 048
     Dates: start: 2013, end: 2013
  2. CLOZARIL [Concomitant]
     Route: 065

REACTIONS (1)
  - Blood prolactin increased [Unknown]
